FAERS Safety Report 10329804 (Version 2)
Quarter: 2014Q3

REPORT INFORMATION
  Report Type: Spontaneous
  Country: GB (occurrence: None)
  Receive Date: 20140717
  Receipt Date: 20140722
  Transmission Date: 20150326
  Serious: Yes (Hospitalization)
  Sender: FDA-Public Use
  Company Number: AUR-APL-2014-07473

PATIENT
  Age: 69 Year
  Sex: Female

DRUGS (9)
  1. SOLIFENACIN [Concomitant]
     Active Substance: SOLIFENACIN
  2. FOLIC ACID. [Concomitant]
     Active Substance: FOLIC ACID
  3. CLOPIDOGREL [Suspect]
     Active Substance: CLOPIDOGREL BISULFATE
     Indication: PRODUCT USED FOR UNKNOWN INDICATION
     Route: 048
     Dates: end: 2014
  4. AMLODIPINE [Concomitant]
     Active Substance: AMLODIPINE BESYLATE
  5. LANSOPRAZOLE. [Concomitant]
     Active Substance: LANSOPRAZOLE
  6. SERTRALINE 50MG (SERTALINE) UNKNOWN, 50MG [Suspect]
     Active Substance: SERTRALINE HYDROCHLORIDE
     Indication: PRODUCT USED FOR UNKNOWN INDICATION
     Dosage: ONCE A DAY
     Route: 048
     Dates: end: 2014
  7. RAMIPRIL. [Concomitant]
     Active Substance: RAMIPRIL
  8. MIRABEGRON [Suspect]
     Active Substance: MIRABEGRON
     Indication: PRODUCT USED FOR UNKNOWN INDICATION
     Route: 048
     Dates: end: 2014
  9. EZETIMIBE. [Concomitant]
     Active Substance: EZETIMIBE

REACTIONS (4)
  - Haemoglobin decreased [None]
  - Dyspepsia [None]
  - Gastritis erosive [None]
  - Small intestinal haemorrhage [None]

NARRATIVE: CASE EVENT DATE: 20140624
